FAERS Safety Report 9943277 (Version 3)
Quarter: 2014Q2

REPORT INFORMATION
  Report Type: Spontaneous
  Country: FR (occurrence: FR)
  Receive Date: 20140303
  Receipt Date: 20140604
  Transmission Date: 20141212
  Serious: Yes (Hospitalization)
  Sender: FDA-Public Use
  Company Number: PHHY2014FR024481

PATIENT
  Age: 2 Day
  Sex: Male
  Weight: 2.81 kg

DRUGS (2)
  1. NEORAL [Suspect]
     Dosage: UNK (MATERNAL DOSE 125 MG QD)
     Route: 064
  2. SOLUPRED [Suspect]
     Dosage: UNK (MATERNAL DOSE 40 MG QD)
     Route: 064

REACTIONS (3)
  - Adrenocortical insufficiency neonatal [Not Recovered/Not Resolved]
  - Convulsion [Recovered/Resolved]
  - Foetal exposure during pregnancy [Unknown]
